FAERS Safety Report 19384470 (Version 2)
Quarter: 2021Q3

REPORT INFORMATION
  Report Type: Spontaneous
  Country: JP (occurrence: JP)
  Receive Date: 20210607
  Receipt Date: 20210716
  Transmission Date: 20211014
  Serious: Yes (Other)
  Sender: FDA-Public Use
  Company Number: JP-BRISTOL-MYERS SQUIBB COMPANY-BMS-2021-054094

PATIENT
  Age: 66 Year
  Sex: Male

DRUGS (1)
  1. OPDIVO [Suspect]
     Active Substance: NIVOLUMAB
     Indication: NASAL CAVITY CANCER
     Dosage: UNK
     Route: 041

REACTIONS (2)
  - Immune-mediated cholangitis [Recovering/Resolving]
  - Immune-mediated hepatitis [Recovering/Resolving]
